FAERS Safety Report 15164751 (Version 6)
Quarter: 2019Q3

REPORT INFORMATION
  Report Type: Spontaneous
  Country: US (occurrence: US)
  Receive Date: 20180719
  Receipt Date: 20190910
  Transmission Date: 20191004
  Serious: Yes (Other)
  Sender: FDA-Public Use
  Company Number: US-SA-2018SA194804

PATIENT
  Age: 45 Year
  Sex: Female

DRUGS (2)
  1. DUPIXENT [Suspect]
     Active Substance: DUPILUMAB
     Dosage: 300 MG, QOW
     Route: 058
     Dates: start: 201804
  2. DUPIXENT [Suspect]
     Active Substance: DUPILUMAB
     Dosage: 300 MG,QOW
     Route: 058
     Dates: start: 201901

REACTIONS (6)
  - Nasopharyngitis [Unknown]
  - Product dose omission [Unknown]
  - Pain in extremity [Unknown]
  - Paraesthesia [Unknown]
  - Gastric bypass [Unknown]
  - Pain [Unknown]

NARRATIVE: CASE EVENT DATE: 20181013
